FAERS Safety Report 5362679-X (Version None)
Quarter: 2007Q2

REPORT INFORMATION
  Report Type: 
  Country: None (occurrence: None)
  Receive Date: 20070619
  Receipt Date: 20070606
  Transmission Date: 20071010
  Serious: Yes (Life-Threatening, Hospitalization)
  Sender: FDA-Public Use
  Company Number: JP-PFIZER INC-2007039746

PATIENT
  Sex: Male
  Weight: 48 kg

DRUGS (7)
  1. IRINOTECAN HCL [Suspect]
     Indication: RECTAL CANCER
     Dosage: DAILY DOSE:220MG
     Route: 042
     Dates: start: 20070509, end: 20070509
  2. FLUOROURACIL [Suspect]
     Indication: RECTAL CANCER
     Dosage: DAILY DOSE:500MG
     Route: 042
     Dates: start: 20070509, end: 20070509
  3. FLUOROURACIL [Suspect]
     Dosage: DAILY DOSE:4000MG
     Route: 042
  4. LEUCOVORIN CALCIUM [Concomitant]
     Route: 042
     Dates: start: 20070509, end: 20070509
  5. NASEA [Concomitant]
     Indication: PREMEDICATION
     Dates: start: 20070509, end: 20070509
  6. DECADRON [Concomitant]
     Indication: PREMEDICATION
     Dates: start: 20070509, end: 20070509
  7. GLIMICRON [Concomitant]
     Route: 048

REACTIONS (2)
  - LOSS OF CONSCIOUSNESS [None]
  - NAUSEA [None]
